FAERS Safety Report 8985545 (Version 1)
Quarter: 2012Q4

REPORT INFORMATION
  Report Type: 
  Country: JP (occurrence: JP)
  Receive Date: 20121226
  Receipt Date: 20121226
  Transmission Date: 20130627
  Serious: Yes (Life-Threatening, Other)
  Sender: FDA-Public Use
  Company Number: JP-ASTRAZENECA-2012SE95126

PATIENT
  Age: 75 Year
  Sex: Male

DRUGS (4)
  1. DIPRIVAN [Suspect]
     Dosage: Dose unknown
     Route: 042
  2. FENTANYL [Concomitant]
     Indication: INDUCTION OF ANAESTHESIA
     Dosage: Dose unknown
     Route: 042
  3. ROCURONIUM BROMIDE [Concomitant]
     Indication: INDUCTION OF ANAESTHESIA
     Dosage: Dose unknown
     Route: 042
  4. REMIFENTANIL HYDROCHLORIDE [Concomitant]
     Indication: MAINTENANCE OF ANAESTHESIA
     Dosage: Dose unknown
     Route: 042

REACTIONS (2)
  - Hyperthermia malignant [Recovered/Resolved]
  - Pulseless electrical activity [Recovered/Resolved]
